FAERS Safety Report 8999921 (Version 1)
Quarter: 2013Q1

REPORT INFORMATION
  Report Type: Report from Study
  Country: US (occurrence: US)
  Receive Date: 20130102
  Receipt Date: 20130102
  Transmission Date: 20140127
  Serious: No
  Sender: FDA-Public Use
  Company Number: US-VERTEX PHARMACEUTICALS INC.-2012-026764

PATIENT
  Sex: Male
  Weight: 83 kg

DRUGS (3)
  1. VX-950 (TELAPREVIR) [Suspect]
     Indication: HEPATITIS C
     Dosage: 750 MG, TID
     Route: 048
     Dates: start: 2012, end: 201210
  2. RIBAPAK [Suspect]
     Indication: HEPATITIS C
     Dosage: 200 MG IN AM/ 400 MG IN PM
     Route: 048
     Dates: start: 2012
  3. PEGASYS [Suspect]
     Indication: HEPATITIS C
     Dosage: 180 ?G, QW
     Route: 058
     Dates: start: 2012

REACTIONS (3)
  - Vertigo [Unknown]
  - Dizziness [Unknown]
  - Pruritus [Not Recovered/Not Resolved]
